FAERS Safety Report 11641496 (Version 1)
Quarter: 2015Q4

REPORT INFORMATION
  Report Type: Spontaneous
  Country: US (occurrence: US)
  Receive Date: 20151019
  Receipt Date: 20151019
  Transmission Date: 20160304
  Serious: Yes (Other)
  Sender: FDA-Public Use
  Company Number: US-TEVA-600846ACC

PATIENT
  Sex: Female
  Weight: 65.38 kg

DRUGS (2)
  1. PARAGARD T 380A [Suspect]
     Active Substance: COPPER
     Dates: start: 20151009
  2. PARAGARD T 380A [Suspect]
     Active Substance: COPPER
     Indication: CONTRACEPTION
     Dates: start: 20150904, end: 20151009

REACTIONS (2)
  - Device dislocation [Recovered/Resolved]
  - Metrorrhagia [Recovered/Resolved]
